FAERS Safety Report 6448096-X (Version None)
Quarter: 2009Q4

REPORT INFORMATION
  Report Type: 
  Country: None (occurrence: None)
  Receive Date: 20091120
  Receipt Date: 20091020
  Transmission Date: 20100525
  Serious: No
  Sender: FDA-Public Use
  Company Number: US-BAYER-200937175NA

PATIENT
  Age: 27 Year
  Sex: Female

DRUGS (2)
  1. YAZ [Suspect]
     Indication: CONTRACEPTION
     Route: 048
     Dates: start: 20080101
  2. ZOLOFT [Concomitant]
     Indication: DEPRESSION
     Dates: start: 20090501

REACTIONS (2)
  - DIARRHOEA [None]
  - MOOD ALTERED [None]
